FAERS Safety Report 13243530 (Version 1)
Quarter: 2017Q1

REPORT INFORMATION
  Report Type: Spontaneous
  Country: US (occurrence: US)
  Receive Date: 20170216
  Receipt Date: 20170216
  Transmission Date: 20170428
  Serious: Yes (Life-Threatening)
  Sender: FDA-Public Use
  Company Number: US-SYNEX-T201604669

PATIENT
  Age: 68 Year
  Sex: Male

DRUGS (3)
  1. MILRINONE [Concomitant]
     Active Substance: MILRINONE
  2. NORMAL SALINE [Concomitant]
     Active Substance: SODIUM CHLORIDE
     Route: 040
  3. INOMAX [Suspect]
     Active Substance: NITRIC OXIDE
     Indication: ACUTE RIGHT VENTRICULAR FAILURE
     Dosage: 20PPM

REACTIONS (2)
  - Rebound effect [Recovered/Resolved]
  - Off label use [Unknown]
